FAERS Safety Report 7103813-0 (Version None)
Quarter: 2010Q4

REPORT INFORMATION
  Report Type: 
  Country: None (occurrence: None)
  Receive Date: 20101115
  Receipt Date: 20101102
  Transmission Date: 20110411
  Serious: Yes (Other)
  Sender: FDA-Public Use
  Company Number: US-ELI_LILLY_AND_COMPANY-US201011001222

PATIENT
  Age: 63 Year
  Sex: Female

DRUGS (8)
  1. CYMBALTA [Suspect]
     Indication: ANXIETY
     Dosage: 30 MG, DAILY (1/D)
  2. VICTOZA [Concomitant]
     Dosage: UNK, DAILY (1/D)
  3. LISINOPRIL [Concomitant]
     Dosage: UNK, UNK
  4. COUMADIN [Concomitant]
  5. METFORMIN HCL [Concomitant]
     Dosage: UNK, UNK
  6. LANSOPRAZOLE [Concomitant]
     Dosage: UNK, UNK
  7. SIMVASTATIN [Concomitant]
     Dosage: UNK, UNK
  8. OMEPRAZOLE [Concomitant]
     Dosage: UNK, UNK

REACTIONS (8)
  - ANGER [None]
  - ANXIETY [None]
  - ATRIAL FIBRILLATION [None]
  - CONTUSION [None]
  - HYPERTENSION [None]
  - INTESTINAL OBSTRUCTION [None]
  - INTESTINAL ULCER [None]
  - URINE COLOUR ABNORMAL [None]
